FAERS Safety Report 7374820-8 (Version None)
Quarter: 2011Q1

REPORT INFORMATION
  Report Type: 
  Country: None (occurrence: None)
  Receive Date: 20110325
  Receipt Date: 20101228
  Transmission Date: 20110831
  Serious: No
  Sender: FDA-Public Use
  Company Number: US-MYLANLABS-2011S1000033

PATIENT
  Age: 97 Year
  Sex: Female

DRUGS (4)
  1. CELEBREX [Concomitant]
  2. NORVASC [Concomitant]
  3. FENTANYL-100 [Suspect]
     Indication: PAIN
     Dosage: Q72H
     Route: 062
     Dates: start: 20101201
  4. EYE DROPS [Concomitant]

REACTIONS (3)
  - JOINT SWELLING [None]
  - DRUG INEFFECTIVE [None]
  - PAIN [None]
